FAERS Safety Report 19662314 (Version 6)
Quarter: 2021Q4

REPORT INFORMATION
  Report Type: Spontaneous
  Country: CN (occurrence: CN)
  Receive Date: 20210805
  Receipt Date: 20211109
  Transmission Date: 20220304
  Serious: Yes (Hospitalization, Other)
  Sender: FDA-Public Use
  Company Number: CN-CELGENE-CHN-20210800034

PATIENT
  Age: 31 Year
  Sex: Female
  Weight: 51 kg

DRUGS (6)
  1. AZACITIDINE [Suspect]
     Active Substance: AZACITIDINE
     Indication: Myelodysplastic syndrome
     Dosage: 75 MILLIGRAM/SQ. METER
     Route: 058
     Dates: start: 20210531, end: 20210606
  2. VENETOCLAX [Suspect]
     Active Substance: VENETOCLAX
     Indication: Myelodysplastic syndrome
     Dosage: 400 MILLIGRAM
     Route: 048
     Dates: start: 20210531, end: 20210613
  3. PHOSPHOLIPID [Concomitant]
     Active Substance: PHOSPHOLIPID
     Indication: Hepatic function abnormal
     Dosage: 2 (NO UNITS)
     Route: 048
     Dates: start: 20210708
  4. POSACONAZOLE [Concomitant]
     Active Substance: POSACONAZOLE
     Indication: Infection prophylaxis
     Dosage: 40 MILLILITER
     Route: 048
     Dates: start: 20210705, end: 20210708
  5. POSACONAZOLE [Concomitant]
     Active Substance: POSACONAZOLE
     Dosage: 45 MILLIGRAM
     Route: 048
     Dates: start: 20210716, end: 20210722
  6. ERYTHROPOIETIN [Concomitant]
     Active Substance: ERYTHROPOIETIN
     Indication: Product used for unknown indication
     Route: 065

REACTIONS (1)
  - Cholangitis [Not Recovered/Not Resolved]

NARRATIVE: CASE EVENT DATE: 20210722
